FAERS Safety Report 7832652-8 (Version None)
Quarter: 2011Q4

REPORT INFORMATION
  Report Type: 
  Country: None (occurrence: None)
  Receive Date: 20111024
  Receipt Date: 20111017
  Transmission Date: 20120403
  Serious: No
  Sender: FDA-Public Use
  Company Number: US-BIOGENIDEC-2011BI038868

PATIENT
  Age: 38 Year
  Sex: Female

DRUGS (1)
  1. TYSABRI [Suspect]
     Indication: MULTIPLE SCLEROSIS
     Route: 042
     Dates: start: 20110914

REACTIONS (7)
  - FATIGUE [None]
  - NAUSEA [None]
  - DYSPNOEA [None]
  - ABDOMINAL DISTENSION [None]
  - FACIAL PAIN [None]
  - CHILLS [None]
  - CHEST PAIN [None]
